FAERS Safety Report 10420568 (Version 1)
Quarter: 2014Q2

REPORT INFORMATION
  Report Type: Spontaneous
  Country: US (occurrence: None)
  Receive Date: 20140627
  Receipt Date: 20140627
  Transmission Date: 20141212
  Serious: Yes (Other)
  Sender: FDA-Public Use
  Company Number: PHEH2013US014139

PATIENT
  Sex: Male

DRUGS (1)
  1. DIOVAN HCT (VALSARTAN, HYDROCHLOROTHIAZIDE) TABLET, 160/25MG [Suspect]
     Dosage: 1 DF (VALS 160 MG, HCTZ 25 MG), DAILY

REACTIONS (1)
  - Blood pressure increased [None]
